FAERS Safety Report 17886645 (Version 2)
Quarter: 2020Q3

REPORT INFORMATION
  Report Type: Spontaneous
  Country: CH (occurrence: CH)
  Receive Date: 20200611
  Receipt Date: 20200708
  Transmission Date: 20201103
  Serious: Yes (Death)
  Sender: FDA-Public Use
  Company Number: CH-MYLANLABS-2020M1055657

PATIENT
  Age: 79 Year
  Sex: Male

DRUGS (2)
  1. NORADRENALINE                      /00127501/ [Suspect]
     Active Substance: NOREPINEPHRINE
     Indication: CARDIOVASCULAR DISORDER
     Dosage: HIGH DOSES
  2. PIPERACILLIN AND TAZOBACTAM [Suspect]
     Active Substance: PIPERACILLIN SODIUM\TAZOBACTAM SODIUM
     Indication: ANTIBIOTIC THERAPY
     Dosage: UNK

REACTIONS (1)
  - Drug ineffective [Fatal]
